FAERS Safety Report 10677019 (Version 1)
Quarter: 2014Q4

REPORT INFORMATION
  Report Type: Report from Study
  Country: US (occurrence: US)
  Receive Date: 20141226
  Receipt Date: 20141226
  Transmission Date: 20150529
  Serious: Yes (Other)
  Sender: FDA-Public Use
  Company Number: US-SA-2014SA174282

PATIENT
  Age: 61 Year
  Sex: Male

DRUGS (2)
  1. LANTUS [Suspect]
     Active Substance: INSULIN GLARGINE
     Indication: TYPE 1 DIABETES MELLITUS
     Dosage: DOSE:100 UNIT(S)
     Route: 065
     Dates: start: 2004
  2. NOVOLOG [Suspect]
     Active Substance: INSULIN ASPART
     Route: 065
     Dates: start: 2004

REACTIONS (1)
  - Pancreatic disorder [Not Recovered/Not Resolved]
